FAERS Safety Report 7535972-X (Version None)
Quarter: 2011Q2

REPORT INFORMATION
  Report Type: 
  Country: None (occurrence: None)
  Receive Date: 20110607
  Receipt Date: 20110607
  Transmission Date: 20111010
  Serious: Yes (Other)
  Sender: FDA-Public Use
  Company Number: None

PATIENT
  Age: 34 Year
  Sex: Female
  Weight: 52.1637 kg

DRUGS (1)
  1. LYBREL [Suspect]
     Indication: MENSTRUAL DISORDER
     Dosage: 1 PILL 1 PER DAY PO
     Route: 048
     Dates: start: 20110518, end: 20110604

REACTIONS (8)
  - MUSCLE SPASMS [None]
  - PAIN [None]
  - INSOMNIA [None]
  - HYPOAESTHESIA [None]
  - VOMITING [None]
  - POLYMENORRHOEA [None]
  - MOOD SWINGS [None]
  - DIZZINESS [None]
